FAERS Safety Report 8167865-1 (Version None)
Quarter: 2012Q1

REPORT INFORMATION
  Report Type: 
  Country: None (occurrence: None)
  Receive Date: 20120227
  Receipt Date: 20120222
  Transmission Date: 20120608
  Serious: No
  Sender: FDA-Public Use
  Company Number: US-BAYER-2012-018434

PATIENT
  Sex: Male
  Weight: 49 kg

DRUGS (5)
  1. PLAVIX [Concomitant]
  2. ALEVE (CAPLET) [Suspect]
     Indication: PAIN
     Dosage: 2 DF, PRN
     Route: 048
  3. FLAX SEED OIL [Concomitant]
  4. MULTI-VITAMINS [Concomitant]
  5. ACETYLSALICYLIC ACID SRT [Concomitant]

REACTIONS (1)
  - PAIN [None]
